FAERS Safety Report 6824779-4 (Version None)
Quarter: 2010Q3

REPORT INFORMATION
  Report Type: 
  Country: None (occurrence: None)
  Receive Date: 20100708
  Receipt Date: 20061118
  Transmission Date: 20110219
  Serious: Yes (Other)
  Sender: FDA-Public Use
  Company Number: US-PFIZER INC-2006144135

PATIENT
  Sex: Male

DRUGS (7)
  1. CHANTIX [Suspect]
     Indication: SMOKING CESSATION THERAPY
     Route: 048
     Dates: start: 20061118
  2. LITHOBID [Interacting]
     Indication: BIPOLAR DISORDER
  3. LIPITOR [Concomitant]
  4. XANAX [Concomitant]
  5. PRILOSEC [Concomitant]
  6. CHOLESTEROL- AND TRIGLYCERIDE REDUCERS [Concomitant]
  7. FLEXERIL [Concomitant]

REACTIONS (3)
  - CHEST PAIN [None]
  - DRUG INTERACTION [None]
  - MOOD SWINGS [None]
